FAERS Safety Report 8802853 (Version 7)
Quarter: 2013Q3

REPORT INFORMATION
  Report Type: Spontaneous
  Country: US (occurrence: US)
  Receive Date: 20120921
  Receipt Date: 20130926
  Transmission Date: 20140515
  Serious: Yes (Hospitalization, Other)
  Sender: FDA-Public Use
  Company Number: US-009507513-1209USA004338

PATIENT
  Sex: Female
  Weight: 55.78 kg

DRUGS (4)
  1. FOSAMAX [Suspect]
     Indication: OSTEOPOROSIS
     Dosage: 40 MG, QW
     Route: 048
     Dates: start: 20050525
  2. FOSAMAX [Suspect]
     Dosage: 70 MG, QW
     Route: 048
     Dates: start: 2003, end: 200802
  3. FOSAMAX [Suspect]
     Dosage: 70 MG, QW
     Route: 048
     Dates: start: 20100511, end: 20100723
  4. ALENDRONATE SODIUM [Suspect]
     Indication: OSTEOPOROSIS
     Dosage: 70 MG, QW
     Route: 048
     Dates: start: 200803, end: 200811

REACTIONS (38)
  - Femur fracture [Recovered/Resolved]
  - Intramedullary rod insertion [Unknown]
  - Endodontic procedure [Unknown]
  - Joint dislocation [Unknown]
  - Vitamin D deficiency [Unknown]
  - Arthralgia [Not Recovered/Not Resolved]
  - Heart rate irregular [Unknown]
  - Sleep apnoea syndrome [Unknown]
  - Rhinitis allergic [Unknown]
  - Sarcoidosis [Unknown]
  - Constipation [Unknown]
  - Fatigue [Unknown]
  - Ligament sprain [Unknown]
  - Bursitis [Unknown]
  - Epicondylitis [Unknown]
  - Abdominal pain [Unknown]
  - Inappropriate schedule of drug administration [Unknown]
  - Mitral valve prolapse [Unknown]
  - Gastrooesophageal reflux disease [Unknown]
  - Gastritis [Unknown]
  - Syncope [Unknown]
  - Haematuria [Unknown]
  - Sleep apnoea syndrome [Unknown]
  - Rhinitis allergic [Unknown]
  - Arthralgia [Unknown]
  - Humerus fracture [Unknown]
  - Haemorrhagic diathesis [Unknown]
  - Overdose [Unknown]
  - Eczema [Unknown]
  - Multiple fractures [Unknown]
  - Sinus disorder [Unknown]
  - Open reduction of fracture [Unknown]
  - Osteotomy [Unknown]
  - Humerus fracture [Unknown]
  - Fracture nonunion [Unknown]
  - Fall [Unknown]
  - Arthrofibrosis [Unknown]
  - Osteoarthritis [Unknown]
